FAERS Safety Report 24609428 (Version 1)
Quarter: 2024Q4

REPORT INFORMATION
  Report Type: Report from Study
  Country: US (occurrence: US)
  Receive Date: 20241112
  Receipt Date: 20241112
  Transmission Date: 20250114
  Serious: Yes (Death, Other)
  Sender: ALEXION PHARMACEUTICALS
  Company Number: US-AstraZeneca-CH-00744597A

PATIENT

DRUGS (4)
  1. ALBUTEROL\BUDESONIDE [Suspect]
     Active Substance: ALBUTEROL\BUDESONIDE
     Dosage: AIRSUPRA 90-80MCG INHALER - INHALE 2 PUFFS BY MOUTH AS NEEDED SIX TIMES PER DAY
  2. ALBUTEROL\BUDESONIDE [Suspect]
     Active Substance: ALBUTEROL\BUDESONIDE
     Dosage: AIRSUPRA 90-80MCG INHALER - INHALE 2 PUFFS BY MOUTH AS NEEDED SIX TIMES PER DAY
  3. ALBUTEROL\BUDESONIDE [Suspect]
     Active Substance: ALBUTEROL\BUDESONIDE
     Dosage: AIRSUPRA 90-80MCG INHALER - INHALE 2 PUFFS BY MOUTH AS NEEDED SIX TIMES PER DAY
  4. ALBUTEROL\BUDESONIDE [Suspect]
     Active Substance: ALBUTEROL\BUDESONIDE
     Dosage: AIRSUPRA 90-80MCG INHALER - INHALE 2 PUFFS BY MOUTH AS NEEDED SIX TIMES PER DAY

REACTIONS (1)
  - Death [Fatal]
